FAERS Safety Report 7080740-9 (Version None)
Quarter: 2010Q4

REPORT INFORMATION
  Report Type: 
  Country: None (occurrence: None)
  Receive Date: 20101022
  Receipt Date: 20101008
  Transmission Date: 20110411
  Serious: Yes (Other)
  Sender: FDA-Public Use
  Company Number: 2010MA003509

PATIENT
  Age: 64 Year
  Sex: Female

DRUGS (11)
  1. FEVERALL [Suspect]
     Dates: start: 20100728
  2. ZANAFLEX [Suspect]
     Indication: MULTIPLE SCLEROSIS
     Dosage: 2 MG; BID; PO
     Route: 048
     Dates: start: 20100105
  3. GAVISCON [Concomitant]
  4. CEPHALEXIN [Concomitant]
  5. ADCAL-D3 [Concomitant]
  6. ALENDRONIC ACID [Concomitant]
  7. FYBOGEL [Concomitant]
  8. BACLOFEN [Concomitant]
  9. VITAMIN B COMPOUND [Concomitant]
  10. TEMAZEPAM [Concomitant]
  11. SENNA [Concomitant]

REACTIONS (1)
  - BLOOD SODIUM DECREASED [None]
